FAERS Safety Report 6640891-7 (Version None)
Quarter: 2010Q1

REPORT INFORMATION
  Report Type: 
  Country: None (occurrence: None)
  Receive Date: 20100318
  Receipt Date: 20100305
  Transmission Date: 20100710
  Serious: Yes (Death)
  Sender: FDA-Public Use
  Company Number: DE-ELI_LILLY_AND_COMPANY-DE201002006800

PATIENT
  Sex: Male
  Weight: 75 kg

DRUGS (8)
  1. EFFIENT [Suspect]
     Dosage: 10 MG, 1X1
     Route: 048
     Dates: start: 20091201
  2. ASPIRIN [Concomitant]
     Dosage: 100 MG, UNKNOWN
     Route: 065
  3. MOLSIDOMINE [Concomitant]
     Dosage: 8 MG, UNKNOWN
     Route: 065
  4. METOPROLOL TARTRATE [Concomitant]
     Dosage: 47.5 MG, UNKNOWN
     Route: 065
  5. PANTOZOL [Concomitant]
     Dosage: 40 MG, UNKNOWN
     Route: 065
  6. TELMISARTAN [Concomitant]
     Dosage: 80 MG, UNKNOWN
     Route: 065
  7. SIMVASTATIN [Concomitant]
     Dosage: 40 MG, UNKNOWN
     Route: 065
  8. LYRICA [Concomitant]
     Dosage: 75 MG, UNKNOWN
     Route: 065

REACTIONS (1)
  - SUDDEN CARDIAC DEATH [None]
